FAERS Safety Report 9371099 (Version 1)
Quarter: 2013Q2

REPORT INFORMATION
  Report Type: Spontaneous
  Country: US (occurrence: None)
  Receive Date: 20130626
  Receipt Date: 20130626
  Transmission Date: 20140414
  Serious: Yes (Hospitalization)
  Sender: FDA-Public Use
  Company Number: None

PATIENT
  Age: 62 Year
  Sex: Male
  Weight: 86.18 kg

DRUGS (2)
  1. CISPLATIN [Suspect]
  2. PROGRAF [Concomitant]

REACTIONS (4)
  - Oral pain [None]
  - Dehydration [None]
  - Renal failure acute [None]
  - Electrolyte imbalance [None]
